FAERS Safety Report 4274931-X (Version None)
Quarter: 2004Q1

REPORT INFORMATION
  Report Type: 
  Country: None (occurrence: None)
  Receive Date: 20040120
  Receipt Date: 20040108
  Transmission Date: 20041129
  Serious: Yes (Hospitalization, Other)
  Sender: FDA-Public Use
  Company Number: WAES 0401USA00619

PATIENT
  Age: 70 Year
  Sex: Male

DRUGS (5)
  1. [THERAPY UNSPECIFIED] [Concomitant]
  2. VIOXX [Suspect]
     Indication: POST PROCEDURAL PAIN
     Route: 048
     Dates: start: 20020901, end: 20031201
  3. VIOXX [Suspect]
     Route: 048
     Dates: end: 20020901
  4. VIOXX [Suspect]
     Indication: BACK PAIN
     Route: 048
     Dates: start: 20020901, end: 20031201
  5. VIOXX [Suspect]
     Route: 048
     Dates: end: 20020901

REACTIONS (3)
  - BACK DISORDER [None]
  - BRADYCARDIA [None]
  - CEREBROVASCULAR ACCIDENT [None]
